FAERS Safety Report 19406876 (Version 3)
Quarter: 2022Q1

REPORT INFORMATION
  Report Type: Report from Study
  Country: GB (occurrence: GB)
  Receive Date: 20210611
  Receipt Date: 20220217
  Transmission Date: 20220423
  Serious: Yes (Hospitalization, Other)
  Sender: FDA-Public Use
  Company Number: GB-BRISTOL-MYERS SQUIBB COMPANY-BMS-2021-053661

PATIENT
  Age: 76 Year
  Sex: Male

DRUGS (1)
  1. ABATACEPT [Suspect]
     Active Substance: ABATACEPT
     Indication: Rheumatoid arthritis
     Dosage: 125 MILLIGRAM, QWK
     Route: 058

REACTIONS (8)
  - Angina pectoris [Unknown]
  - Hospitalisation [Unknown]
  - Gastric ulcer [Unknown]
  - Injection site extravasation [Unknown]
  - Dizziness [Recovered/Resolved]
  - Oxygen saturation decreased [Unknown]
  - Stress [Unknown]
  - Malaise [Unknown]
